FAERS Safety Report 9003267 (Version 1)
Quarter: 2013Q1

REPORT INFORMATION
  Report Type: Spontaneous
  Country: GB (occurrence: GB)
  Receive Date: 20130108
  Receipt Date: 20130108
  Transmission Date: 20140127
  Serious: Yes (Hospitalization, Other)
  Sender: FDA-Public Use
  Company Number: GB-TARO-2012P1068392

PATIENT
  Sex: Male

DRUGS (2)
  1. WARFARIN [Suspect]
     Route: 064
  2. WARFARIN [Suspect]
     Route: 064

REACTIONS (6)
  - Metabolic acidosis [Recovered/Resolved]
  - Hyperlactacidaemia [Recovered/Resolved]
  - Coagulopathy [Recovered/Resolved]
  - Anaemia [Recovered/Resolved]
  - Cerebral haemorrhage [Recovered/Resolved]
  - Foetal warfarin syndrome [Recovered/Resolved]
